FAERS Safety Report 8515348-9 (Version None)
Quarter: 2012Q3

REPORT INFORMATION
  Report Type: 
  Country: None (occurrence: None)
  Receive Date: 20120717
  Receipt Date: 20120705
  Transmission Date: 20120928
  Serious: Yes (Hospitalization)
  Sender: FDA-Public Use
  Company Number: AR-UCBSA-061577

PATIENT
  Age: 39 Year
  Sex: Female

DRUGS (3)
  1. KEPPRA [Suspect]
     Indication: EPILEPSY
     Dosage: DAILY DOSE: 2700 MG
     Route: 048
     Dates: start: 20120101, end: 20120607
  2. LEXAPRO [Concomitant]
  3. VALPROATE SODIUM [Concomitant]

REACTIONS (5)
  - SEDATION [None]
  - SOMNOLENCE [None]
  - DEPRESSION [None]
  - FATIGUE [None]
  - MYOCLONUS [None]
